FAERS Safety Report 7269913-X (Version None)
Quarter: 2010Q4

REPORT INFORMATION
  Report Type: 
  Country: None (occurrence: None)
  Receive Date: 20101130
  Receipt Date: 20090804
  Transmission Date: 20110411
  Serious: Yes (Hospitalization)
  Sender: FDA-Public Use
  Company Number: 2008-188531-NL

PATIENT
  Age: 36 Year
  Sex: Female
  Weight: 59 kg

DRUGS (7)
  1. NUVARING [Suspect]
     Indication: PRODUCT USED FOR UNKNOWN INDICATION
     Dosage: 1 DF; VAG
     Route: 067
     Dates: start: 20031229, end: 20050829
  2. AMBIEN [Concomitant]
  3. FIORICET [Concomitant]
  4. ACETAMINOPHEN W/ CODEINE [Concomitant]
  5. PROVERA [Concomitant]
  6. TOPAMAX [Concomitant]
  7. MOTRIN [Concomitant]

REACTIONS (6)
  - DEHYDRATION [None]
  - MIGRAINE [None]
  - MYALGIA [None]
  - NAUSEA [None]
  - PULMONARY EMBOLISM [None]
  - VOMITING [None]
